FAERS Safety Report 15602268 (Version 1)
Quarter: 2018Q4

REPORT INFORMATION
  Report Type: Spontaneous
  Country: SA (occurrence: SA)
  Receive Date: 20181109
  Receipt Date: 20181109
  Transmission Date: 20190205
  Serious: Yes (Death, Life-Threatening, Hospitalization, Other)
  Sender: FDA-Public Use
  Company Number: SA-UNITED THERAPEUTICS-UNT-2018-016961

PATIENT
  Age: 24 Year
  Sex: Female
  Weight: 50.7 kg

DRUGS (3)
  1. REMODULIN [Suspect]
     Active Substance: TREPROSTINIL
     Dosage: 0.02 ?G/KG, CONTINUING
     Route: 041
     Dates: start: 20181101
  2. REMODULIN [Suspect]
     Active Substance: TREPROSTINIL
     Indication: PRODUCT USED FOR UNKNOWN INDICATION
     Dosage: 0.00125 ?G/KG, CONTINUING
     Route: 041
     Dates: start: 20181011
  3. REMODULIN [Suspect]
     Active Substance: TREPROSTINIL
     Dosage: 0.0115 ?G/KG, CONTINUING
     Route: 041
     Dates: start: 201810

REACTIONS (5)
  - Respiratory distress [Fatal]
  - Hypotension [Unknown]
  - Maternal exposure during pregnancy [Unknown]
  - Agitation [Recovering/Resolving]
  - Cardiac arrest [Fatal]

NARRATIVE: CASE EVENT DATE: 20181011
